FAERS Safety Report 6897567-0 (Version None)
Quarter: 2010Q3

REPORT INFORMATION
  Report Type: 
  Country: None (occurrence: None)
  Receive Date: 20100802
  Receipt Date: 20070608
  Transmission Date: 20110219
  Serious: No
  Sender: FDA-Public Use
  Company Number: US-PFIZER INC-2007047128

PATIENT
  Sex: Female

DRUGS (1)
  1. LYRICA [Suspect]

REACTIONS (6)
  - DRY MOUTH [None]
  - DYSARTHRIA [None]
  - FEELING ABNORMAL [None]
  - GAIT DISTURBANCE [None]
  - SOMNOLENCE [None]
  - THROAT TIGHTNESS [None]
